FAERS Safety Report 4533491-6 (Version None)
Quarter: 2004Q4

REPORT INFORMATION
  Report Type: 
  Country: None (occurrence: None)
  Receive Date: 20041221
  Receipt Date: 20041105
  Transmission Date: 20050328
  Serious: Yes (Life-Threatening, Hospitalization, Disabling, Other)
  Sender: FDA-Public Use
  Company Number: US-MERCK-0411USA01014

PATIENT
  Age: 82 Year
  Sex: Female
  Weight: 70 kg

DRUGS (9)
  1. VIOXX [Suspect]
     Indication: OSTEOARTHRITIS
     Route: 048
     Dates: start: 20000601
  2. VIOXX [Suspect]
     Route: 048
     Dates: end: 20040101
  3. HUMULIN N [Concomitant]
     Route: 058
  4. HYDRODIURIL [Concomitant]
     Route: 048
  5. PRILOSEC [Concomitant]
     Route: 048
  6. CELEXA [Concomitant]
     Route: 065
  7. NORVASC [Concomitant]
     Route: 048
  8. GLUCOPHAGE [Concomitant]
     Route: 048
  9. LOTENSIN [Concomitant]
     Route: 048

REACTIONS (4)
  - ASTHENIA [None]
  - CEREBROVASCULAR ACCIDENT [None]
  - MEMORY IMPAIRMENT [None]
  - TRANSIENT ISCHAEMIC ATTACK [None]
